FAERS Safety Report 23636184 (Version 1)
Quarter: 2024Q1

REPORT INFORMATION
  Report Type: Spontaneous
  Country: GB (occurrence: GB)
  Receive Date: 20240315
  Receipt Date: 20240315
  Transmission Date: 20240410
  Serious: Yes (Other)
  Sender: FDA-Public Use
  Company Number: None

PATIENT
  Age: 5 Year
  Sex: Male
  Weight: 28 kg

DRUGS (36)
  1. CASPOFUNGIN ACETATE [Suspect]
     Active Substance: CASPOFUNGIN ACETATE
     Dosage: UNK
  2. TREOSULFAN [Suspect]
     Active Substance: TREOSULFAN
     Dosage: UNK
  3. ACYCLOVIR [Concomitant]
     Active Substance: ACYCLOVIR
  4. AMLODIPINE [Concomitant]
     Active Substance: AMLODIPINE BESYLATE
  5. CELLCEPT [Concomitant]
     Active Substance: MYCOPHENOLATE MOFETIL
  6. CETIRIZINE [Concomitant]
     Active Substance: CETIRIZINE HYDROCHLORIDE
  7. CHLORAL HYDRATE [Concomitant]
     Active Substance: CHLORAL HYDRATE
  8. CLONIDINE [Concomitant]
     Active Substance: CLONIDINE
  9. CHLORPHENIRAMINE MALEATE [Concomitant]
     Active Substance: CHLORPHENIRAMINE MALEATE
  10. CYCLIZINE [Concomitant]
     Active Substance: CYCLIZINE
  11. ESOMEPRAZOLE [Concomitant]
     Active Substance: ESOMEPRAZOLE
  12. FENTANYL [Concomitant]
     Active Substance: FENTANYL\FENTANYL CITRATE
  13. BETAMETHASONE VALERATE\FUSIDIC ACID [Concomitant]
     Active Substance: BETAMETHASONE VALERATE\FUSIDIC ACID
  14. FUROSEMIDE [Concomitant]
     Active Substance: FUROSEMIDE
  15. FIBRYGA [Concomitant]
     Active Substance: FIBRINOGEN HUMAN
  16. GABAPENTIN [Concomitant]
     Active Substance: GABAPENTIN
  17. HYDRALAZINE [Concomitant]
     Active Substance: HYDRALAZINE HYDROCHLORIDE
  18. SCOPOLAMINE [Concomitant]
     Active Substance: SCOPOLAMINE
  19. MAGNESIUM SULFATE [Concomitant]
     Active Substance: MAGNESIUM SULFATE\MAGNESIUM SULFATE HEPTAHYDRATE
  20. KETAMINE [Concomitant]
     Active Substance: KETAMINE
  21. LEVETIRACETAM [Concomitant]
     Active Substance: LEVETIRACETAM
  22. LORAZEPAM [Concomitant]
     Active Substance: LORAZEPAM
  23. MELATONIN [Concomitant]
     Active Substance: MELATONIN
  24. METHYLPREDNISOLONE [Concomitant]
     Active Substance: METHYLPREDNISOLONE
  25. NIFEDIPINE [Concomitant]
     Active Substance: NIFEDIPINE
  26. ONDANSETRON [Concomitant]
     Active Substance: ONDANSETRON
  27. OXYCODONE [Concomitant]
     Active Substance: OXYCODONE\OXYCODONE HYDROCHLORIDE
  28. ACETAMINOPHEN [Concomitant]
     Active Substance: ACETAMINOPHEN
  29. PARECOXIB [Concomitant]
     Active Substance: PARECOXIB
  30. PENTAMIDINE [Concomitant]
     Active Substance: PENTAMIDINE
  31. PIPERACILLIN AND TAZOBACTAM [Concomitant]
     Active Substance: PIPERACILLIN SODIUM\TAZOBACTAM SODIUM
  32. ROCURONIUM BROMIDE [Concomitant]
     Active Substance: ROCURONIUM BROMIDE
  33. CYCLOSPORINE [Concomitant]
     Active Substance: CYCLOSPORINE
  34. TEICOPLANIN [Concomitant]
     Active Substance: TEICOPLANIN
  35. CHOLECALCIFEROL [Concomitant]
     Active Substance: CHOLECALCIFEROL
  36. VORICONAZOLE [Concomitant]
     Active Substance: VORICONAZOLE

REACTIONS (5)
  - Blister [Not Recovered/Not Resolved]
  - Skin discolouration [Unknown]
  - Rash [Unknown]
  - Skin exfoliation [Unknown]
  - Pigmentation disorder [Unknown]

NARRATIVE: CASE EVENT DATE: 20240204
